FAERS Safety Report 7206931-1 (Version None)
Quarter: 2011Q1

REPORT INFORMATION
  Report Type: 
  Country: None (occurrence: None)
  Receive Date: 20110103
  Receipt Date: 20101222
  Transmission Date: 20110831
  Serious: Yes (Other)
  Sender: FDA-Public Use
  Company Number: A0897981A

PATIENT
  Age: 64 Year
  Sex: Male

DRUGS (3)
  1. VASOTEC [Concomitant]
  2. JALYN [Suspect]
     Indication: BLADDER DISORDER
     Route: 048
     Dates: start: 20100901
  3. PROTONIX [Concomitant]

REACTIONS (7)
  - DEEP VEIN THROMBOSIS [None]
  - PAIN IN EXTREMITY [None]
  - VERTIGO [None]
  - SINUS DISORDER [None]
  - DYSSTASIA [None]
  - RESPIRATORY TRACT CONGESTION [None]
  - DIZZINESS [None]
